FAERS Safety Report 12311747 (Version 2)
Quarter: 2016Q2

REPORT INFORMATION
  Report Type: Spontaneous
  Country: BR (occurrence: BR)
  Receive Date: 20160427
  Receipt Date: 20160429
  Transmission Date: 20160815
  Serious: Yes (Other)
  Sender: FDA-Public Use
  Company Number: BR-ELI_LILLY_AND_COMPANY-BR201604006809

PATIENT
  Sex: Male
  Weight: 104 kg

DRUGS (3)
  1. HUMULIN R [Suspect]
     Active Substance: INSULIN HUMAN
     Indication: DIABETES MELLITUS MANAGEMENT
     Dosage: 4 IU, TID
     Route: 058
     Dates: start: 20160418
  2. HUMULIN N [Suspect]
     Active Substance: INSULIN HUMAN
     Indication: PRODUCT USED FOR UNKNOWN INDICATION
     Dosage: 50 IU, EACH MORNING
     Route: 065
     Dates: start: 2014
  3. HUMULIN N [Suspect]
     Active Substance: INSULIN HUMAN
     Dosage: 30 IU, EACH EVENING
     Route: 065
     Dates: start: 2014

REACTIONS (9)
  - Incorrect product storage [Unknown]
  - Blood glucose increased [Unknown]
  - Wrong drug administered [Unknown]
  - Injection site mass [Unknown]
  - Overweight [Unknown]
  - Spinal disorder [Unknown]
  - Renal disorder [Unknown]
  - Skin cancer [Unknown]
  - Blood glucose abnormal [Unknown]

NARRATIVE: CASE EVENT DATE: 20160418
